FAERS Safety Report 21041146 (Version 4)
Quarter: 2022Q4

REPORT INFORMATION
  Report Type: Report from Study
  Country: BR (occurrence: BR)
  Receive Date: 20220705
  Receipt Date: 20221223
  Transmission Date: 20230113
  Serious: Yes (Hospitalization, Other)
  Sender: FDA-Public Use
  Company Number: BR-ABBVIE-22K-020-4449019-00

PATIENT
  Age: 56 Year
  Sex: Female
  Weight: 49 kg

DRUGS (4)
  1. RINVOQ [Suspect]
     Active Substance: UPADACITINIB
     Indication: Rheumatoid arthritis
     Dosage: 1 TABLET
     Route: 048
     Dates: start: 20210710, end: 20220524
  2. RINVOQ [Suspect]
     Active Substance: UPADACITINIB
     Indication: Rheumatoid arthritis
     Route: 048
     Dates: start: 20220728
  3. PREDSIM 20 mg [Concomitant]
     Indication: Pyrexia
     Dosage: 1 TABLET
     Route: 048
  4. ROSUVASTATIN [Concomitant]
     Active Substance: ROSUVASTATIN
     Indication: Blood cholesterol
     Route: 048

REACTIONS (21)
  - Myocardial infarction [Recovered/Resolved]
  - Septic shock [Recovered/Resolved]
  - Cardiac failure [Unknown]
  - Loss of consciousness [Recovering/Resolving]
  - COVID-19 [Recovered/Resolved]
  - Vomiting [Recovering/Resolving]
  - Arterial angioplasty [Unknown]
  - Weight decreased [Unknown]
  - Diarrhoea [Recovering/Resolving]
  - Anxiety [Recovering/Resolving]
  - Gastritis [Recovering/Resolving]
  - Cough [Recovering/Resolving]
  - Multimorbidity [Unknown]
  - Pain in extremity [Recovering/Resolving]
  - Pain in extremity [Recovering/Resolving]
  - Unevaluable event [Recovering/Resolving]
  - Dyspnoea [Recovering/Resolving]
  - Lung disorder [Unknown]
  - Bacterial infection [Recovered/Resolved]
  - Chest discomfort [Recovering/Resolving]
  - Pain [Recovered/Resolved]

NARRATIVE: CASE EVENT DATE: 20220524
